FAERS Safety Report 6247720-4 (Version None)
Quarter: 2009Q2

REPORT INFORMATION
  Report Type: 
  Country: None (occurrence: None)
  Receive Date: 20090626
  Receipt Date: 20090616
  Transmission Date: 20091009
  Serious: Yes (Other)
  Sender: FDA-Public Use
  Company Number: PHHY2009JP14009

PATIENT
  Age: 49 Year
  Sex: Male

DRUGS (1)
  1. GLEEVEC [Suspect]
     Indication: GASTROINTESTINAL STROMAL TUMOUR
     Dosage: 400 MG/DAY

REACTIONS (5)
  - BONE MARROW FAILURE [None]
  - FISTULA [None]
  - PANCREATICODUODENECTOMY [None]
  - PLATELET COUNT DECREASED [None]
  - THERAPY RESPONDER [None]
